FAERS Safety Report 11201330 (Version 1)
Quarter: 2015Q2

REPORT INFORMATION
  Report Type: Spontaneous
  Country: US (occurrence: None)
  Receive Date: 20150617
  Receipt Date: 20150617
  Transmission Date: 20150821
  Serious: Yes (Hospitalization)
  Sender: FDA-Public Use
  Company Number: None

PATIENT
  Age: 54 Year
  Sex: Female
  Weight: 115 kg

DRUGS (5)
  1. FLUOXETINE [Concomitant]
     Active Substance: FLUOXETINE\FLUOXETINE HYDROCHLORIDE
  2. LEVOCETIRIZINE 5 MG [Concomitant]
     Active Substance: LEVOCETIRIZINE
  3. METFORMIN [Concomitant]
     Active Substance: METFORMIN HYDROCHLORIDE
  4. INVOKAMET [Suspect]
     Active Substance: CANAGLIFLOZIN\METFORMIN HYDROCHLORIDE
     Indication: TYPE 2 DIABETES MELLITUS
     Dosage: 150/1000
     Route: 048
     Dates: start: 20150612, end: 20150615
  5. LEVOTHROID 200 MCG [Concomitant]

REACTIONS (5)
  - Nausea [None]
  - Headache [None]
  - Dyspnoea [None]
  - Ketoacidosis [None]
  - Diarrhoea [None]

NARRATIVE: CASE EVENT DATE: 20150615
